FAERS Safety Report 4402009-0 (Version None)
Quarter: 2004Q3

REPORT INFORMATION
  Report Type: 
  Country: None (occurrence: None)
  Receive Date: 20040719
  Receipt Date: 20040719
  Transmission Date: 20050211
  Serious: No
  Sender: FDA-Public Use
  Company Number: None

PATIENT
  Age: 9 Year
  Sex: Male
  Weight: 27 kg

DRUGS (15)
  1. VALPROIC ACID SYRUP [Suspect]
     Indication: CONVULSION
     Dosage: 500 MG EVERY PM OROPHARINGEAL
     Route: 049
     Dates: start: 20040501, end: 20040505
  2. TOBRAMYCIN [Concomitant]
  3. NIFEDIPINE [Concomitant]
  4. OXCARBAZEPINE [Concomitant]
  5. PHENOBARBITAL TAB [Concomitant]
  6. PIPERACILLIN/TAZOBACTAM [Concomitant]
  7. RANITIDINE SYRUP [Concomitant]
  8. CEFTAZIDIME [Concomitant]
  9. CLONAZEPAM [Concomitant]
  10. BUDESONIDE [Concomitant]
  11. ALBUTEROL [Concomitant]
  12. LORAZEPAM [Concomitant]
  13. HYDROCORTISONE [Concomitant]
  14. LACTULOSE [Concomitant]
  15. GLYCOPYRROLATE [Concomitant]

REACTIONS (16)
  - ATELECTASIS [None]
  - BLOOD CREATININE DECREASED [None]
  - BLOODY DISCHARGE [None]
  - COAGULOPATHY [None]
  - CONVULSION [None]
  - DRUG TOXICITY [None]
  - EMPYEMA [None]
  - HAEMATOCRIT DECREASED [None]
  - HAEMOGLOBIN DECREASED [None]
  - HAEMOTHORAX [None]
  - HYPOVOLAEMIA [None]
  - INTERNATIONAL NORMALISED RATIO INCREASED [None]
  - PLEURAL EFFUSION [None]
  - PNEUMONIA [None]
  - PROTHROMBIN TIME PROLONGED [None]
  - RESPIRATORY FAILURE [None]
